FAERS Safety Report 8293170-9 (Version None)
Quarter: 2012Q2

REPORT INFORMATION
  Report Type: 
  Country: None (occurrence: None)
  Receive Date: 20120417
  Receipt Date: 20110729
  Transmission Date: 20120825
  Serious: No
  Sender: FDA-Public Use
  Company Number: US-ASTRAZENECA-2011SE45826

PATIENT
  Age: 63 Year
  Sex: Female
  Weight: 86.2 kg

DRUGS (4)
  1. NEXIUM [Suspect]
     Indication: GASTROOESOPHAGEAL REFLUX DISEASE
     Route: 048
  2. LIPITOR [Concomitant]
  3. NEXIUM [Suspect]
     Route: 048
  4. DIOVAN [Concomitant]

REACTIONS (3)
  - HYPERTENSION [None]
  - INCORRECT DRUG ADMINISTRATION DURATION [None]
  - OSTEOPOROSIS [None]
